FAERS Safety Report 18587051 (Version 1)
Quarter: 2020Q4

REPORT INFORMATION
  Report Type: Report from Study
  Country: US (occurrence: US)
  Receive Date: 20201207
  Receipt Date: 20201207
  Transmission Date: 20210114
  Serious: Yes (Death, Other)
  Sender: FDA-Public Use
  Company Number: US-GLAXOSMITHKLINE-US2020AMR125236

PATIENT
  Age: 70 Year
  Sex: Female

DRUGS (6)
  1. NIRAPARIB [Suspect]
     Active Substance: NIRAPARIB
     Dosage: 100 MG, QD
     Route: 065
     Dates: start: 20201006
  2. NIRAPARIB [Suspect]
     Active Substance: NIRAPARIB
     Indication: OVARIAN CANCER
     Dosage: 200 MG, QD
     Route: 065
     Dates: start: 20200619, end: 20200712
  3. NIRAPARIB [Suspect]
     Active Substance: NIRAPARIB
     Dosage: 200 MG, QD
     Route: 065
     Dates: start: 20200713, end: 20200820
  4. NIRAPARIB [Suspect]
     Active Substance: NIRAPARIB
     Dosage: 100 MG, QD
  5. NIRAPARIB [Suspect]
     Active Substance: NIRAPARIB
     Dosage: 100 MG, QOD
     Route: 065
     Dates: start: 202009
  6. NIRAPARIB [Suspect]
     Active Substance: NIRAPARIB
     Dosage: 100 MG, QD
     Route: 065
     Dates: start: 20200831, end: 20201005

REACTIONS (15)
  - Death [Fatal]
  - Blood pressure fluctuation [Recovered/Resolved]
  - Constipation [Not Recovered/Not Resolved]
  - Platelet count decreased [Recovering/Resolving]
  - Taste disorder [Recovering/Resolving]
  - Blood creatinine increased [Unknown]
  - Sleep disorder [Not Recovered/Not Resolved]
  - Salivary hypersecretion [Recovered/Resolved]
  - Dry mouth [Recovered/Resolved]
  - Hiccups [Unknown]
  - Oral pain [Recovered/Resolved]
  - Fatigue [Not Recovered/Not Resolved]
  - Dyspepsia [Not Recovered/Not Resolved]
  - White blood cell count decreased [Unknown]
  - Product use issue [Unknown]

NARRATIVE: CASE EVENT DATE: 20201126
